FAERS Safety Report 7706306-2 (Version None)
Quarter: 2011Q3

REPORT INFORMATION
  Report Type: 
  Country: None (occurrence: None)
  Receive Date: 20110824
  Receipt Date: 20110818
  Transmission Date: 20111222
  Serious: Yes (Death, Hospitalization)
  Sender: FDA-Public Use
  Company Number: FR-ROCHE-797906

PATIENT
  Age: 65 Year
  Sex: Male

DRUGS (5)
  1. BYETTA [Concomitant]
  2. REPAGLINIDE [Concomitant]
  3. TAMIFLU [Suspect]
     Dosage: PATIENT TOOK TAMIFLU FOR 5-6 DAYS
     Route: 048
     Dates: start: 20110205
  4. METFORMIN HCL [Suspect]
     Route: 048
  5. IRBESARTAN AND HYDROCHLOROTHIAZIDE [Concomitant]

REACTIONS (3)
  - METABOLIC ACIDOSIS [None]
  - DISSEMINATED INTRAVASCULAR COAGULATION [None]
  - LACTIC ACIDOSIS [None]
